FAERS Safety Report 4649105-0 (Version None)
Quarter: 2005Q2

REPORT INFORMATION
  Report Type: 
  Country: None (occurrence: None)
  Receive Date: 20050429
  Receipt Date: 20041019
  Transmission Date: 20051028
  Serious: Yes (Hospitalization)
  Sender: FDA-Public Use
  Company Number: FR-GLAXOSMITHKLINE-B0348937A

PATIENT
  Age: 31 Month
  Sex: Female
  Weight: 14.1 kg

DRUGS (4)
  1. ONDANSETRON [Suspect]
     Indication: VOMITING
     Route: 042
     Dates: start: 20041018
  2. PLITICAN [Suspect]
     Indication: VOMITING
     Route: 042
     Dates: start: 20041018
  3. LATEX [Suspect]
     Route: 065
  4. BETADINE [Suspect]
     Route: 065

REACTIONS (6)
  - ANAPHYLACTIC SHOCK [None]
  - COUGH [None]
  - DYSPHONIA [None]
  - EYELID OEDEMA [None]
  - FACE OEDEMA [None]
  - GENERALISED ERYTHEMA [None]
